FAERS Safety Report 12926249 (Version 10)
Quarter: 2020Q2

REPORT INFORMATION
  Report Type: Report from Study
  Country: US (occurrence: US)
  Receive Date: 20161109
  Receipt Date: 20200514
  Transmission Date: 20200713
  Serious: Yes (Hospitalization, Other)
  Sender: FDA-Public Use
  Company Number: PHHO2016US016126

PATIENT
  Age: 57 Year
  Sex: Male
  Weight: 78.5 kg

DRUGS (21)
  1. TAMULOSIN [Concomitant]
     Active Substance: TAMSULOSIN
     Indication: POLLAKIURIA
     Dosage: 2 DF, QHS (NIGHTLY)
     Route: 048
  2. MIRALAX [Concomitant]
     Active Substance: POLYETHYLENE GLYCOL 3350
     Indication: PRODUCT USED FOR UNKNOWN INDICATION
     Dosage: 17 G, QD PRN
     Route: 048
  3. SENOKOT [Concomitant]
     Active Substance: SENNOSIDES
     Indication: PRODUCT USED FOR UNKNOWN INDICATION
     Dosage: 8.6 MG, BID PRN
     Route: 048
  4. BACLOFEN. [Concomitant]
     Active Substance: BACLOFEN
     Indication: MUSCLE SPASMS
  5. FLUOCINONIDE. [Concomitant]
     Active Substance: FLUOCINONIDE
     Indication: DERMATITIS ATOPIC
     Dosage: 0.05 %, BID
     Route: 061
     Dates: start: 20160526
  6. TAMULOSIN [Concomitant]
     Active Substance: TAMSULOSIN
     Indication: MICTURITION URGENCY
     Dosage: 1 DF, QD
     Route: 048
     Dates: start: 20131205
  7. ZOFRAN [Concomitant]
     Active Substance: ONDANSETRON HYDROCHLORIDE
     Indication: NAUSEA
     Dosage: 1 DF, QID
     Route: 048
  8. LIDEX [Concomitant]
     Active Substance: FLUOCINONIDE
     Indication: RASH
     Dosage: UNK UNK, BID (2 WEKS MAX AND 1 WEEKS OFF)
     Route: 065
  9. VITAMIN D3 [Concomitant]
     Active Substance: CHOLECALCIFEROL
     Indication: PRODUCT USED FOR UNKNOWN INDICATION
     Dosage: 5000 U, QD
     Route: 048
  10. BACLOFEN. [Concomitant]
     Active Substance: BACLOFEN
     Indication: MUSCLE SPASTICITY
     Dosage: 10 MG, Q8H PRN
     Route: 048
     Dates: start: 20140415
  11. FLOMAX [Concomitant]
     Active Substance: TAMSULOSIN HYDROCHLORIDE
     Indication: PRODUCT USED FOR UNKNOWN INDICATION
     Dosage: 0.4 MG, QHS
     Route: 048
     Dates: end: 20161101
  12. VITAMIN D [Concomitant]
     Active Substance: VITAMIN D NOS
     Indication: PRODUCT USED FOR UNKNOWN INDICATION
     Dosage: 5000 U, QD
     Route: 048
  13. OXYCODONE [Concomitant]
     Active Substance: OXYCODONE
     Indication: PAIN
     Dosage: 5 MG, PRN, EVERY 4 HOURS AS NEEDED
     Route: 065
  14. VITAMIN B COMPLEX [Concomitant]
     Active Substance: CYANOCOBALAMIN\DEXPANTHENOL\NIACINAMIDE\PYRIDOXINE HYDROCHLORIDE\RIBOFLAVIN 5^-PHOSPHATE SODIUM\THIAMINE HYDROCHLORIDE\VITAMIN B COMPLEX
     Indication: PRODUCT USED FOR UNKNOWN INDICATION
     Dosage: UNK
     Route: 048
  15. LOVENOX [Concomitant]
     Active Substance: ENOXAPARIN SODIUM
     Indication: PRODUCT USED FOR UNKNOWN INDICATION
     Dosage: 40 MG, (40 MG/0.4 ML INJECTION) QD
     Route: 058
     Dates: end: 20160111
  16. TYLENOL [Concomitant]
     Active Substance: ACETAMINOPHEN
     Indication: PRODUCT USED FOR UNKNOWN INDICATION
     Dosage: 650 MG, Q4H PRN
     Route: 048
     Dates: end: 20161101
  17. GILENYA [Suspect]
     Active Substance: FINGOLIMOD HYDROCHLORIDE
     Dosage: 0.5 MG, QD
     Route: 048
     Dates: start: 20161107
  18. MOTRIN [Concomitant]
     Active Substance: IBUPROFEN
     Indication: PAIN
     Dosage: 800 MG, Q8H
     Route: 048
  19. ADVIL [Concomitant]
     Active Substance: IBUPROFEN
     Indication: PAIN
     Dosage: 800 MG, Q8H PRN
     Route: 048
  20. GILENYA [Suspect]
     Active Substance: FINGOLIMOD HYDROCHLORIDE
     Indication: RELAPSING-REMITTING MULTIPLE SCLEROSIS
     Dosage: 0.5 MG, QD
     Route: 048
     Dates: start: 20160112, end: 20161102
  21. ROCEPHIN [Concomitant]
     Active Substance: CEFTRIAXONE SODIUM
     Indication: PRODUCT USED FOR UNKNOWN INDICATION
     Dosage: 2 G, QD IN SODIUM CHLORIDE 0.9% 50 ML PB
     Route: 042
     Dates: end: 20160111

REACTIONS (52)
  - Concomitant disease aggravated [Unknown]
  - Ataxia [Unknown]
  - Leukopenia [Unknown]
  - Blood pH increased [Unknown]
  - Gait disturbance [Unknown]
  - Urinary tract infection [Recovered/Resolved]
  - Pyrexia [Recovering/Resolving]
  - Aspartate aminotransferase increased [Unknown]
  - Multiple sclerosis relapse [Recovering/Resolving]
  - Blood bilirubin increased [Unknown]
  - Blood creatine phosphokinase decreased [Unknown]
  - Chills [Unknown]
  - Micturition urgency [Not Recovered/Not Resolved]
  - Neurogenic bladder [Unknown]
  - Muscular weakness [Recovering/Resolving]
  - Blood alkaline phosphatase increased [Unknown]
  - Iron binding capacity total decreased [Unknown]
  - Hepatomegaly [Unknown]
  - Abdominal pain [Not Recovered/Not Resolved]
  - Alanine aminotransferase increased [Unknown]
  - Hyponatraemia [Unknown]
  - Gallbladder enlargement [Unknown]
  - Ammonia increased [Unknown]
  - Antinuclear antibody positive [Unknown]
  - Nitrite urine present [Unknown]
  - Dysuria [Unknown]
  - Abdominal pain lower [Unknown]
  - Tenderness [Unknown]
  - Neuropathy peripheral [Unknown]
  - Lethargy [Unknown]
  - Red blood cell count decreased [Unknown]
  - Prealbumin decreased [Unknown]
  - Blood pressure decreased [Unknown]
  - Asthenia [Unknown]
  - Benign prostatic hyperplasia [Unknown]
  - Protein total decreased [Unknown]
  - Serum ferritin increased [Unknown]
  - Blood albumin decreased [Unknown]
  - PCO2 decreased [Unknown]
  - Blood bicarbonate increased [Unknown]
  - Infection [Unknown]
  - Bacterial pyelonephritis [Unknown]
  - Myalgia [Recovering/Resolving]
  - Procalcitonin increased [Unknown]
  - Blood calcium decreased [Unknown]
  - Gastrooesophageal reflux disease [Unknown]
  - Chest pain [Unknown]
  - Urinary retention [Recovering/Resolving]
  - Dysstasia [Recovering/Resolving]
  - Thrombocytopenia [Recovered/Resolved]
  - Pseudomonas infection [Unknown]
  - PO2 increased [Unknown]

NARRATIVE: CASE EVENT DATE: 20161024
